FAERS Safety Report 17893572 (Version 1)
Quarter: 2020Q2

REPORT INFORMATION
  Report Type: Spontaneous
  Country: ES (occurrence: ES)
  Receive Date: 20200615
  Receipt Date: 20200615
  Transmission Date: 20200714
  Serious: Yes (Hospitalization)
  Sender: FDA-Public Use
  Company Number: ES-CADILA HEALTHCARE LIMITED-ES-ZYDUS-028135

PATIENT

DRUGS (7)
  1. FOSTER [Concomitant]
     Active Substance: BECLOMETHASONE\FORMOTEROL
     Dosage: 1 DOSAGE FORM,200 MICROGRAMS / 6 MICROGRAMS FOR INHALATION DUST ...,(INTERVAL :12 HOURS)
     Route: 055
  2. NOLOTIL [Concomitant]
     Dosage: 575 MILLIGRAM,575 MG HARD CAPSULES, 20 CAPSULES,(INTERVAL :8 HOURS)
     Route: 048
  3. ORFIDAL [Concomitant]
     Active Substance: LORAZEPAM
     Dosage: 1 MILLIGRAM,1 MG, 50 TABLETS,(INTERVAL :8 HOURS)
     Route: 048
     Dates: start: 20180308, end: 20180424
  4. NOCTAMID [Concomitant]
     Active Substance: LORMETAZEPAM
     Dosage: 1 MILLIGRAM,1 MG COMPRESSED, 30 TABLETS,(INTERVAL :1 DAYS)
     Route: 048
     Dates: start: 20180308, end: 20180424
  5. TRANXILIUM [Concomitant]
     Active Substance: CLORAZEPATE DIPOTASSIUM
     Dosage: 50 MILLIGRAM,50 MG FILM-COATED TABLETS, 20 TABLETS,(INTERVAL :1 DAYS)
     Route: 048
     Dates: start: 20180308, end: 20180424
  6. DULOXETINE. [Suspect]
     Active Substance: DULOXETINE
     Indication: PERSISTENT DEPRESSIVE DISORDER
     Dosage: 60 MILLIGRAM,(INTERVAL :1 DAYS)
     Route: 048
     Dates: start: 20180308, end: 20180419
  7. VENTOLIN [Concomitant]
     Active Substance: ALBUTEROL SULFATE
     Dosage: 100 MICROGRAM,100 MICROGRAMS / INHALATION SUSPENSION FOR INHALATION IN E,(INTERVAL :12 HOURS)
     Route: 055

REACTIONS (1)
  - Blood creatine phosphokinase increased [Recovering/Resolving]

NARRATIVE: CASE EVENT DATE: 20180419
